FAERS Safety Report 23846989 (Version 4)
Quarter: 2025Q1

REPORT INFORMATION
  Report Type: Report from Study
  Country: US (occurrence: US)
  Receive Date: 20240513
  Receipt Date: 20250221
  Transmission Date: 20250409
  Serious: No
  Sender: DR REDDYS
  Company Number: US-E2BLSMVVAL-CLI/USA/24/0006868

PATIENT
  Age: 7 Year
  Sex: Male
  Weight: 32.7 kg

DRUGS (2)
  1. JAVYGTOR [Suspect]
     Active Substance: SAPROPTERIN DIHYDROCHLORIDE
     Indication: Phenylketonuria
     Dosage: DISSOLVE 2 PACKETS (200 MG) IN 4 TO 8 OUNCES OF WATER OR APPLE JUICE AND TAKE ONCE DAILY WITH A MEAL
     Route: 048
  2. JAVYGTOR [Suspect]
     Active Substance: SAPROPTERIN DIHYDROCHLORIDE
     Indication: Phenylketonuria
     Dosage: DISSOLVE 2 PACKETS (200 MG) IN 4 TO 8 OUNCES OF WATER OR APPLE JUICE AND TAKE BY MOUTH ONCE DAILY WI
     Route: 048

REACTIONS (8)
  - Appetite disorder [Not Recovered/Not Resolved]
  - Viral infection [Not Recovered/Not Resolved]
  - Vomiting [Not Recovered/Not Resolved]
  - Pyrexia [Not Recovered/Not Resolved]
  - Product dose omission issue [Unknown]
  - Illness [Unknown]
  - Nasopharyngitis [Unknown]
  - Gastroenteritis viral [Unknown]

NARRATIVE: CASE EVENT DATE: 20240801
